FAERS Safety Report 10879574 (Version 1)
Quarter: 2015Q1

REPORT INFORMATION
  Report Type: Spontaneous
  Country: US (occurrence: None)
  Receive Date: 20150225
  Receipt Date: 20150225
  Transmission Date: 20150721
  Serious: No
  Sender: FDA-Public Use
  Company Number: None

PATIENT
  Age: 67 Year
  Sex: Female
  Weight: 53.3 kg

DRUGS (2)
  1. CARBOPLATIN. [Suspect]
     Active Substance: CARBOPLATIN
     Dates: end: 20141120
  2. TAXOL [Suspect]
     Active Substance: PACLITAXEL
     Dates: end: 20141120

REACTIONS (3)
  - Metastases to adrenals [None]
  - Metastases to pelvis [None]
  - Malignant neoplasm progression [None]

NARRATIVE: CASE EVENT DATE: 20150203
